FAERS Safety Report 15488115 (Version 1)
Quarter: 2018Q4

REPORT INFORMATION
  Report Type: Spontaneous
  Country: US (occurrence: US)
  Receive Date: 20181003
  Receipt Date: 20181003
  Transmission Date: 20190205
  Serious: Yes (Hospitalization)
  Sender: FDA-Public Use
  Company Number: None

PATIENT
  Age: 83 Year
  Sex: Male
  Weight: 70.31 kg

DRUGS (1)
  1. DRONEDARONE [Suspect]
     Active Substance: DRONEDARONE
     Indication: ATRIAL FIBRILLATION
     Route: 048
     Dates: start: 20180501, end: 20180512

REACTIONS (4)
  - Palpitations [None]
  - Atrial flutter [None]
  - Cardiac failure [None]
  - Hypervolaemia [None]

NARRATIVE: CASE EVENT DATE: 20180512
